FAERS Safety Report 7983842-5 (Version None)
Quarter: 2011Q4

REPORT INFORMATION
  Report Type: 
  Country: None (occurrence: None)
  Receive Date: 20111216
  Receipt Date: 20111207
  Transmission Date: 20120403
  Serious: Yes (Hospitalization)
  Sender: FDA-Public Use
  Company Number: US-BIOGENIDEC-2011BI046579

PATIENT
  Age: 38 Year
  Sex: Female

DRUGS (4)
  1. AVONEX [Suspect]
     Indication: MULTIPLE SCLEROSIS
     Route: 030
     Dates: start: 20110731, end: 20111126
  2. DEPRESSION MEDICATION (NOS) [Concomitant]
     Indication: PANIC ATTACK
  3. MEDICATION FOR ASTHMA (NOS) [Concomitant]
     Indication: ASTHMA
  4. DEPRESSION MEDICATION (NOS) [Concomitant]
     Indication: DEPRESSION

REACTIONS (17)
  - PNEUMONIA [None]
  - OEDEMA [None]
  - ASTHMA [None]
  - RENAL FAILURE [None]
  - CHRONIC OBSTRUCTIVE PULMONARY DISEASE [None]
  - DEHYDRATION [None]
  - ELECTROLYTE DEPLETION [None]
  - HYPOPHAGIA [None]
  - URINARY RETENTION [None]
  - HALLUCINATION [None]
  - RESPIRATORY FAILURE [None]
  - CHILLS [None]
  - MYALGIA [None]
  - WHEEZING [None]
  - GASTRIC DISORDER [None]
  - PLEURAL EFFUSION [None]
  - AGITATION [None]
